FAERS Safety Report 9011545 (Version 4)
Quarter: 2018Q1

REPORT INFORMATION
  Report Type: Spontaneous
  Country: US (occurrence: US)
  Receive Date: 20130108
  Receipt Date: 20180221
  Transmission Date: 20180509
  Serious: Yes (Other)
  Sender: FDA-Public Use
  Company Number: US-INCYTE CORPORATION-2013IN000018

PATIENT

DRUGS (23)
  1. JAKAFI [Suspect]
     Active Substance: RUXOLITINIB
     Indication: MYELOFIBROSIS
     Dosage: 20 MG, BID
     Route: 048
     Dates: start: 20120120, end: 20130401
  2. TUMS                               /06879101/ [Concomitant]
     Active Substance: CALCIUM CARBONATE\MAGNESIUM CARBONATE
     Indication: ANTACID THERAPY
     Dosage: UNK, QD
     Route: 048
  3. LORTADINE [Concomitant]
     Indication: PRODUCT USED FOR UNKNOWN INDICATION
     Dosage: 10 MG, QD
     Route: 048
  4. JAKAFI [Suspect]
     Active Substance: RUXOLITINIB
     Dosage: 20 MG, BID
     Route: 048
     Dates: start: 20120120, end: 20130401
  5. JAKAFI [Suspect]
     Active Substance: RUXOLITINIB
     Dosage: 10 MG, BID
     Dates: start: 201712
  6. LYRICA [Concomitant]
     Active Substance: PREGABALIN
  7. VITAMIN B12 [Concomitant]
     Active Substance: CYANOCOBALAMIN
     Indication: PRODUCT USED FOR UNKNOWN INDICATION
     Dosage: 1500 MCG, QD
     Route: 060
  8. NAPROXEN. [Concomitant]
     Active Substance: NAPROXEN
     Indication: PRODUCT USED FOR UNKNOWN INDICATION
     Dosage: 500 MG, BID, WITH MEALS
     Route: 048
  9. JAKAFI [Suspect]
     Active Substance: RUXOLITINIB
     Dosage: 10 MG, BID
     Route: 048
     Dates: start: 201304, end: 201304
  10. JAKAFI [Suspect]
     Active Substance: RUXOLITINIB
     Dosage: 10 MG FREQUENCY NOT SPECIFIED
  11. JAKAFI [Suspect]
     Active Substance: RUXOLITINIB
     Dosage: 15 MG FREQUENCY NOT SPECIFIED
  12. VITAMIN B [Concomitant]
     Active Substance: VITAMIN B
  13. ESCITALOPRAM [Concomitant]
     Active Substance: ESCITALOPRAM OXALATE
     Indication: PRODUCT USED FOR UNKNOWN INDICATION
     Dosage: 20 MG, QD
     Route: 048
  14. IBUPROFEN. [Concomitant]
     Active Substance: IBUPROFEN
     Indication: PAIN
     Dosage: 200 MG, Q 4 HOURS PRN
     Route: 048
  15. LEVOTHYROXINE. [Concomitant]
     Active Substance: LEVOTHYROXINE
     Indication: PRODUCT USED FOR UNKNOWN INDICATION
     Dosage: 25 MCG, QD, A.C.
     Route: 048
  16. VITAMIN D                          /00107901/ [Concomitant]
     Active Substance: ERGOCALCIFEROL
  17. JAKAFI [Suspect]
     Active Substance: RUXOLITINIB
     Dosage: 20 MG FREQUENCY NOT SPECIFIED
  18. JAKAFI [Suspect]
     Active Substance: RUXOLITINIB
     Dosage: 25 MG, BID
  19. JAKAFI [Suspect]
     Active Substance: RUXOLITINIB
     Dosage: 5 MG, BID
     Route: 048
     Dates: start: 20170623
  20. IRON [Suspect]
     Active Substance: IRON
     Indication: ANAEMIA
     Dosage: UNK
     Dates: start: 20120127
  21. ASPIRIN                            /00002701/ [Concomitant]
     Active Substance: ASPIRIN
     Indication: PRODUCT USED FOR UNKNOWN INDICATION
     Dosage: 162 MG, QD
     Route: 048
  22. LORAZEPAM. [Concomitant]
     Active Substance: LORAZEPAM
     Indication: PRODUCT USED FOR UNKNOWN INDICATION
     Dosage: 1 TABLET DURING DAY, 2 TABLETS AT NIGHT
     Route: 048
  23. TRAMADOL. [Concomitant]
     Active Substance: TRAMADOL
     Indication: PAIN
     Dosage: 50 MG, Q 4 HOURS PRN
     Route: 048

REACTIONS (43)
  - Transfusion reaction [Unknown]
  - Anxiety [Unknown]
  - Wheezing [Unknown]
  - Weight increased [Unknown]
  - Haemoglobin decreased [Unknown]
  - Vitamin B1 decreased [Unknown]
  - Arthralgia [Unknown]
  - Pruritus [Unknown]
  - Urticaria [Unknown]
  - Selective IgA immunodeficiency [Unknown]
  - Weight decreased [Unknown]
  - Anaemia [Unknown]
  - Urinary tract infection [Unknown]
  - Gastrointestinal haemorrhage [Unknown]
  - Vitamin D deficiency [Unknown]
  - Peripheral swelling [Unknown]
  - Joint swelling [Unknown]
  - Diarrhoea [Unknown]
  - Night sweats [Unknown]
  - Haemorrhoidal haemorrhage [Unknown]
  - Asthenia [Unknown]
  - Dyspnoea [Unknown]
  - Pain [Unknown]
  - Intervertebral disc disorder [Unknown]
  - Mood altered [Unknown]
  - Squamous cell carcinoma [Unknown]
  - Dyspepsia [Unknown]
  - Nausea [Unknown]
  - Vomiting [Unknown]
  - Ageusia [Unknown]
  - Iron overload [Unknown]
  - Haemolysis [Unknown]
  - Rebound effect [Unknown]
  - Bone pain [Unknown]
  - Headache [Unknown]
  - Drug dose omission [Unknown]
  - Fatigue [Unknown]
  - Malaise [Unknown]
  - Splenomegaly [Unknown]
  - Seizure [Unknown]
  - Soft tissue disorder [Unknown]
  - Blood folate increased [Unknown]
  - Swelling [Unknown]

NARRATIVE: CASE EVENT DATE: 2012
